FAERS Safety Report 4498373-7 (Version None)
Quarter: 2004Q4

REPORT INFORMATION
  Report Type: 
  Country: None (occurrence: None)
  Receive Date: 20041105
  Receipt Date: 20041029
  Transmission Date: 20050328
  Serious: Yes (Hospitalization)
  Sender: FDA-Public Use
  Company Number: DEWYE160929OCT04

PATIENT
  Age: 35 Year
  Sex: Female

DRUGS (8)
  1. RAPAMUNE [Suspect]
     Indication: PROPHYLAXIS AGAINST TRANSPLANT REJECTION
     Dosage: 2 MG
     Route: 048
     Dates: start: 20040904, end: 20041018
  2. CELLCEPT [Concomitant]
  3. PREDNISOLONE [Concomitant]
  4. METOPROLOL SUCCINATE [Concomitant]
  5. CYNT (MOXONIDINE) [Concomitant]
  6. DIBLOCIN (DOXAZOSIN MESILATE) [Concomitant]
  7. NORVASC [Concomitant]
  8. LEVOTHYROXINE SODIUM [Concomitant]

REACTIONS (4)
  - BLOOD CREATININE INCREASED [None]
  - BLOOD GLUCOSE INCREASED [None]
  - GINGIVAL HYPERPLASIA [None]
  - HYPERTRIGLYCERIDAEMIA [None]
